FAERS Safety Report 9913634 (Version 1)
Quarter: 2014Q1

REPORT INFORMATION
  Report Type: Spontaneous
  Country: US (occurrence: None)
  Receive Date: 20140219
  Receipt Date: 20140219
  Transmission Date: 20141002
  Serious: Yes (Other)
  Sender: FDA-Public Use
  Company Number: None

PATIENT
  Age: 5 Year
  Sex: Male
  Weight: 23 kg

DRUGS (1)
  1. FOCALIN XR [Suspect]
     Indication: ATTENTION DEFICIT/HYPERACTIVITY DISORDER
     Dosage: 1 CAPSULE
     Route: 048
     Dates: start: 20140203, end: 20140215

REACTIONS (9)
  - Psychomotor hyperactivity [None]
  - Condition aggravated [None]
  - Crying [None]
  - Screaming [None]
  - Hallucination [None]
  - Speech disorder [None]
  - Suspiciousness [None]
  - Restlessness [None]
  - Abnormal behaviour [None]
